FAERS Safety Report 5205078-3 (Version None)
Quarter: 2007Q1

REPORT INFORMATION
  Report Type: 
  Country: None (occurrence: None)
  Receive Date: 20070110
  Receipt Date: 20061020
  Transmission Date: 20070707
  Serious: No
  Sender: FDA-Public Use
  Company Number: US-BRISTOL-MYERS SQUIBB COMPANY-13550835

PATIENT
  Age: 61 Year
  Sex: Male
  Weight: 100 kg

DRUGS (4)
  1. ABILIFY [Suspect]
     Indication: BIPOLAR DISORDER
     Dosage: PREVIOUSLY 10 MG HS
     Route: 048
     Dates: start: 20050501
  2. ADVAIR DISKUS 100/50 [Concomitant]
  3. FLOMAX [Concomitant]
  4. NABUMETONE [Concomitant]

REACTIONS (2)
  - MUSCLE TWITCHING [None]
  - SOMNOLENCE [None]
